FAERS Safety Report 25051717 (Version 1)
Quarter: 2025Q1

REPORT INFORMATION
  Report Type: Spontaneous
  Country: US (occurrence: None)
  Receive Date: 20250307
  Receipt Date: 20250307
  Transmission Date: 20250408
  Serious: Yes (Hospitalization)
  Sender: FDA-CTU
  Company Number: None

PATIENT
  Sex: Female

DRUGS (11)
  1. LENALIDOMIDE [Suspect]
     Active Substance: LENALIDOMIDE
     Indication: Plasma cell myeloma
     Dosage: TAKE CAPSULE (10 MG) BY MOUTH DAILY FOR 21 DAYS OF 28 DAY CYCLE, (21 DAYS ON 7 DAYS OFF)
     Route: 048
  2. ALBUTEROL [Concomitant]
     Active Substance: ALBUTEROL
  3. ALLOPURINOL [Concomitant]
     Active Substance: ALLOPURINOL
  4. AMLODIPINE [Concomitant]
     Active Substance: AMLODIPINE BESYLATE
  5. ASCORBIC ACD [Concomitant]
  6. ASPIRIN [Concomitant]
     Active Substance: ASPIRIN
  7. CALCIUM CARBONATE [Concomitant]
     Active Substance: CALCIUM CARBONATE
  8. CENTRUM SILV [Concomitant]
  9. DEXMETHASON [Concomitant]
  10. DICLOFENAC [Concomitant]
     Active Substance: DICLOFENAC
  11. DULOXETINE [Concomitant]
     Active Substance: DULOXETINE

REACTIONS (1)
  - Hospitalisation [None]
